FAERS Safety Report 14783424 (Version 2)
Quarter: 2018Q3

REPORT INFORMATION
  Report Type: Other
  Country: JP (occurrence: JP)
  Receive Date: 20180420
  Receipt Date: 20180712
  Transmission Date: 20181010
  Serious: Yes (Death, Other)
  Sender: FDA-Public Use
  Company Number: JP-ACTELION-A-CH2018-170891

PATIENT
  Age: 13 Day
  Sex: Male

DRUGS (4)
  1. EPOPROSTENOL SODIUM. [Suspect]
     Active Substance: EPOPROSTENOL SODIUM
     Indication: PERSISTENT FOETAL CIRCULATION
     Route: 042
  2. OXYGEN. [Concomitant]
     Active Substance: OXYGEN
  3. NITRIC OXIDE. [Concomitant]
     Active Substance: NITRIC OXIDE
  4. SILDENAFIL. [Concomitant]
     Active Substance: SILDENAFIL

REACTIONS (6)
  - Therapeutic response decreased [Unknown]
  - Gastrointestinal disorder [Unknown]
  - Alveolar capillary dysplasia [Unknown]
  - Death [Fatal]
  - Pulmonary hypertension [Unknown]
  - Transfusion [Unknown]
